FAERS Safety Report 12738695 (Version 1)
Quarter: 2016Q3

REPORT INFORMATION
  Report Type: Spontaneous
  Country: US (occurrence: US)
  Receive Date: 20160913
  Receipt Date: 20160913
  Transmission Date: 20161109
  Serious: No
  Sender: FDA-Public Use
  Company Number: US-ENDO PHARMACEUTICALS INC.-2016-003842

PATIENT
  Sex: Male

DRUGS (5)
  1. AVEED [Suspect]
     Active Substance: TESTOSTERONE UNDECANOATE
     Indication: TESTICULAR FAILURE
     Dosage: 4TH CYCLE OF 1 INJECTION
     Route: 065
     Dates: start: 2016, end: 2016
  2. LATUDA [Concomitant]
     Active Substance: LURASIDONE HYDROCHLORIDE
     Indication: PRODUCT USED FOR UNKNOWN INDICATION
  3. AVEED [Suspect]
     Active Substance: TESTOSTERONE UNDECANOATE
     Dosage: 1ST, 2ND, AND 3RD CYCLE OF 1 INJECTION,
     Route: 065
     Dates: end: 2015
  4. A-HYDROCORT [Concomitant]
     Active Substance: HYDROCORTISONE SODIUM SUCCINATE
     Indication: PRODUCT USED FOR UNKNOWN INDICATION
  5. FLUVOXAMINE [Concomitant]
     Active Substance: FLUVOXAMINE
     Indication: PRODUCT USED FOR UNKNOWN INDICATION

REACTIONS (1)
  - Drug ineffective [Unknown]
